FAERS Safety Report 24031098 (Version 1)
Quarter: 2024Q2

REPORT INFORMATION
  Report Type: Other
  Country: US (occurrence: US)
  Receive Date: 20240628
  Receipt Date: 20240628
  Transmission Date: 20240715
  Serious: Yes (Other)
  Sender: FDA-Public Use
  Company Number: US-B.Braun Medical Inc.-2158671

PATIENT
  Age: 76 Year
  Sex: Male

DRUGS (2)
  1. THEOPHYLLINE IN DEXTROSE [Suspect]
     Active Substance: DEXTROSE MONOHYDRATE\THEOPHYLLINE\THEOPHYLLINE ANHYDROUS
     Indication: Chronic obstructive pulmonary disease
  2. AZITHROMYCIN [Suspect]
     Active Substance: AZITHROMYCIN

REACTIONS (1)
  - Drug ineffective [Unknown]
